FAERS Safety Report 24959606 (Version 1)
Quarter: 2025Q1

REPORT INFORMATION
  Report Type: Report from Study
  Country: US (occurrence: US)
  Receive Date: 20250212
  Receipt Date: 20250212
  Transmission Date: 20250409
  Serious: No
  Sender: SANDOZ
  Company Number: US-SANDOZ-SDZ2024US064847

PATIENT
  Sex: Female

DRUGS (2)
  1. OMNITROPE [Suspect]
     Active Substance: SOMATROPIN
     Indication: Product use in unapproved indication
     Dosage: 5 MG,QD
     Route: 030
     Dates: start: 20230309
  2. OMNITROPE [Suspect]
     Active Substance: SOMATROPIN
     Indication: Product use in unapproved indication
     Dosage: 5 MG,QD
     Route: 030
     Dates: start: 20230309

REACTIONS (2)
  - Drug ineffective [Unknown]
  - Device breakage [Unknown]
